FAERS Safety Report 8886660 (Version 1)
Quarter: 2012Q4

REPORT INFORMATION
  Report Type: 
  Country: CN (occurrence: CN)
  Receive Date: 20121105
  Receipt Date: 20121105
  Transmission Date: 20130627
  Serious: Yes (Hospitalization)
  Sender: FDA-Public Use
  Company Number: PHHY2012CN100613

PATIENT
  Age: 52 Year
  Sex: Female

DRUGS (1)
  1. CEFOPERAZONE SODIUM/SULBACTAM SODIUM [Suspect]
     Indication: ENDOCARDITIS

REACTIONS (4)
  - Drug-induced liver injury [Recovered/Resolved]
  - Blood bilirubin increased [Recovered/Resolved]
  - Aspartate aminotransferase increased [Recovered/Resolved]
  - Alanine aminotransferase increased [Recovered/Resolved]
